FAERS Safety Report 5196324-3 (Version None)
Quarter: 2006Q4

REPORT INFORMATION
  Report Type: 
  Country: None (occurrence: None)
  Receive Date: 20061222
  Receipt Date: 20061214
  Transmission Date: 20070319
  Serious: Yes (Hospitalization)
  Sender: FDA-Public Use
  Company Number: 2006142820

PATIENT
  Age: 50 Year
  Sex: Male

DRUGS (4)
  1. LIPITOR [Suspect]
     Indication: MYOCARDIAL ISCHAEMIA
     Dosage: 40 MG (40 MG, 2 IN 1 D)
  2. LIPITOR [Suspect]
     Indication: VASCULAR BYPASS GRAFT
     Dosage: 40 MG (40 MG, 2 IN 1 D)
  3. LESCOL [Concomitant]
  4. AMIODARONE HCL [Concomitant]

REACTIONS (1)
  - THYROID FUNCTION TEST ABNORMAL [None]
